FAERS Safety Report 9556775 (Version 1)
Quarter: 2013Q3

REPORT INFORMATION
  Report Type: Spontaneous
  Country: US (occurrence: None)
  Receive Date: 20130726
  Receipt Date: 20130726
  Transmission Date: 20140515
  Serious: Yes (Hospitalization)
  Sender: FDA-Public Use
  Company Number: UTC-015944

PATIENT
  Age: 70 Year
  Sex: Female
  Weight: 68.18 kg

DRUGS (1)
  1. REMODULIN (2.5 MILLIGRAM/MILLILITERS, INJECTION FOR INFUSION) (TREPROSTINIL SODIUM) [Suspect]
     Indication: COR PULMONALE CHRONIC
     Route: 042
     Dates: start: 20090128

REACTIONS (4)
  - Device related infection [None]
  - Food poisoning [None]
  - Escherichia infection [None]
  - Weight decreased [None]
